FAERS Safety Report 21051722 (Version 1)
Quarter: 2022Q3

REPORT INFORMATION
  Report Type: Spontaneous
  Country: JP (occurrence: None)
  Receive Date: 20220707
  Receipt Date: 20220707
  Transmission Date: 20221027
  Serious: Yes (Disabling)
  Sender: FDA-Public Use
  Company Number: 2022A240876

PATIENT
  Age: 89 Year
  Sex: Female

DRUGS (1)
  1. FASLODEX [Suspect]
     Active Substance: FULVESTRANT
     Indication: Breast cancer female
     Dosage: DOSE UNKNOWN
     Route: 030
     Dates: end: 202206

REACTIONS (1)
  - Neuritis [Recovering/Resolving]

NARRATIVE: CASE EVENT DATE: 20220620
